FAERS Safety Report 7382359-9 (Version None)
Quarter: 2011Q1

REPORT INFORMATION
  Report Type: 
  Country: None (occurrence: None)
  Receive Date: 20110329
  Receipt Date: 20110214
  Transmission Date: 20110831
  Serious: Yes (Hospitalization)
  Sender: FDA-Public Use
  Company Number: US-BAYER-2011-025283

PATIENT
  Sex: Female
  Weight: 104 kg

DRUGS (5)
  1. YAZ [Suspect]
     Indication: PRODUCT USED FOR UNKNOWN INDICATION
     Dosage: UNK
     Route: 048
     Dates: start: 20080101
  2. OCELLA [Suspect]
     Indication: PRODUCT USED FOR UNKNOWN INDICATION
     Dosage: UNK
     Dates: start: 20080101
  3. UNCODEABLE ^UNCLASSIFIABLE^ [Concomitant]
  4. YASMIN [Suspect]
     Indication: PRODUCT USED FOR UNKNOWN INDICATION
     Dosage: UNK
     Route: 048
     Dates: start: 20080101
  5. ADVIL LIQUI-GELS [Concomitant]

REACTIONS (5)
  - ABDOMINAL PAIN [None]
  - BACK PAIN [None]
  - CHOLELITHIASIS [None]
  - CHOLECYSTECTOMY [None]
  - CHOLECYSTITIS ACUTE [None]
